FAERS Safety Report 4413215-3 (Version None)
Quarter: 2004Q3

REPORT INFORMATION
  Report Type: 
  Country: None (occurrence: None)
  Receive Date: 20040802
  Receipt Date: 20040729
  Transmission Date: 20050211
  Serious: Yes (Life-Threatening, Hospitalization)
  Sender: FDA-Public Use
  Company Number: PHBS2004BR10025

PATIENT
  Age: 55 Year
  Sex: Female

DRUGS (5)
  1. ZOMETA [Suspect]
     Indication: BREAST CANCER METASTATIC
     Dosage: 4 MG
     Route: 065
  2. HERCEPTIN [Suspect]
     Route: 065
  3. FASLODEX [Suspect]
     Route: 065
  4. GENTAMICIN [Suspect]
     Route: 065
  5. CISPLATIN [Suspect]
     Route: 065

REACTIONS (5)
  - COMA [None]
  - GASTROINTESTINAL HAEMORRHAGE [None]
  - SEPTIC SHOCK [None]
  - THROMBOCYTOPENIA [None]
  - ULCER [None]
